FAERS Safety Report 4466098-X (Version None)
Quarter: 2004Q3

REPORT INFORMATION
  Report Type: 
  Country: None (occurrence: None)
  Receive Date: 20040929
  Receipt Date: 20040929
  Transmission Date: 20050211
  Serious: Yes (Other)
  Sender: FDA-Public Use
  Company Number: None

PATIENT
  Age: 36 Year
  Sex: Female

DRUGS (1)
  1. NAFCILLIN SODIUM [Suspect]
     Indication: CELLULITIS
     Dosage: 1 GM IV Q 6 HRS
     Route: 042

REACTIONS (1)
  - RASH [None]
